APPROVED DRUG PRODUCT: RILUZOLE
Active Ingredient: RILUZOLE
Strength: 50MG
Dosage Form/Route: TABLET;ORAL
Application: A076173 | Product #001 | TE Code: AB
Applicant: IMPAX LABORATORIES INC
Approved: Jan 29, 2003 | RLD: No | RS: No | Type: RX